FAERS Safety Report 9139933 (Version 1)
Quarter: 2013Q1

REPORT INFORMATION
  Report Type: Spontaneous
  Country: JP (occurrence: JP)
  Receive Date: 20130305
  Receipt Date: 20130305
  Transmission Date: 20140127
  Serious: Yes (Death)
  Sender: FDA-Public Use
  Company Number: JP-ASTELLAS-2013US002328

PATIENT
  Age: 32 Year
  Sex: Female

DRUGS (1)
  1. AMBISOME [Suspect]
     Indication: FEBRILE NEUTROPENIA
     Dosage: UNK
     Route: 065

REACTIONS (1)
  - Leukaemia [Fatal]
